FAERS Safety Report 8934707 (Version 2)
Quarter: 2013Q1

REPORT INFORMATION
  Report Type: Spontaneous
  Country: BE (occurrence: BE)
  Receive Date: 20121129
  Receipt Date: 20130306
  Transmission Date: 20140127
  Serious: Yes (Hospitalization)
  Sender: FDA-Public Use
  Company Number: BE-ROCHE-1160066

PATIENT
  Sex: 0

DRUGS (1)
  1. OMALIZUMAB [Suspect]
     Indication: ASTHMA
     Route: 064

REACTIONS (2)
  - Respiratory disorder [Unknown]
  - Maternal exposure timing unspecified [Unknown]
